FAERS Safety Report 9026751 (Version 1)
Quarter: 2013Q1

REPORT INFORMATION
  Report Type: Report from Study
  Country: GB (occurrence: GB)
  Receive Date: 20130123
  Receipt Date: 20130123
  Transmission Date: 20140127
  Serious: Yes (Hospitalization)
  Sender: FDA-Public Use
  Company Number: GB-TEVA-382021USA

PATIENT
  Age: 68 Year
  Sex: Male

DRUGS (3)
  1. TREANDA [Suspect]
     Route: 042
     Dates: start: 20120412, end: 20121105
  2. THALIDOMIDE [Suspect]
     Route: 048
     Dates: start: 20120412, end: 20121109
  3. DEXAMETHASONE [Suspect]
     Dosage: REGIMEN #1
     Dates: start: 20120412, end: 20121109

REACTIONS (4)
  - Cough [Recovered/Resolved]
  - Pyrexia [Recovered/Resolved]
  - Lung disorder [Recovered/Resolved]
  - Hypoxia [Recovered/Resolved]
